FAERS Safety Report 6587093-0 (Version None)
Quarter: 2010Q1

REPORT INFORMATION
  Report Type: 
  Country: None (occurrence: None)
  Receive Date: 20100217
  Receipt Date: 20090623
  Transmission Date: 20100710
  Serious: Yes (Hospitalization)
  Sender: FDA-Public Use
  Company Number: US-ALLERGAN-0905497US

PATIENT
  Age: 22 Year
  Sex: Male
  Weight: 85.714 kg

DRUGS (7)
  1. BOTOX [Suspect]
     Indication: DYSTONIA
     Dosage: 100 UNITS, SINGLE
     Route: 030
     Dates: start: 20090325, end: 20090325
  2. BOTOX [Suspect]
     Dosage: UNK, SINGLE
     Route: 030
     Dates: start: 20090120, end: 20090120
  3. PROVIGIL [Suspect]
     Indication: NARCOLEPSY
  4. MS CONTIN [Concomitant]
     Indication: PAIN
  5. VALIUM [Concomitant]
     Indication: ANXIETY
  6. EFFEXOR [Concomitant]
     Indication: ANXIETY
  7. NAPROXEN [Concomitant]
     Indication: INFLAMMATION

REACTIONS (2)
  - ANAPHYLACTIC REACTION [None]
  - ANGIOEDEMA [None]
